FAERS Safety Report 12491971 (Version 3)
Quarter: 2016Q3

REPORT INFORMATION
  Report Type: Spontaneous
  Country: JP (occurrence: JP)
  Receive Date: 20160623
  Receipt Date: 20160730
  Transmission Date: 20161109
  Serious: Yes (Other)
  Sender: FDA-Public Use
  Company Number: JP-AMGEN-JPNSP2016080261

PATIENT
  Age: 68 Year
  Sex: Male

DRUGS (11)
  1. PREDNISOLONE. [Suspect]
     Active Substance: PREDNISOLONE
     Dosage: 5 MG, QD, MORNING
     Route: 048
     Dates: start: 201510
  2. CALCITAMIN [Concomitant]
     Active Substance: MINERALS\VITAMINS
     Dosage: 1.0 MUG, QD, MORNING
     Route: 048
     Dates: start: 201505
  3. EKATENIN [Concomitant]
     Dosage: UNK, ONCE EVERY 1 WK
     Route: 058
     Dates: start: 20150630
  4. EDIROL [Concomitant]
     Active Substance: ELDECALCITOL
     Dosage: 1 DF, QD
     Route: 048
     Dates: start: 20160517
  5. REBAMIPIDE [Concomitant]
     Active Substance: REBAMIPIDE
     Dosage: 1 DF, TID
     Route: 048
     Dates: start: 20150630, end: 20150930
  6. LANSOPRAZOLE. [Concomitant]
     Active Substance: LANSOPRAZOLE
     Dosage: 15 MG, QD, MORNING
     Route: 048
     Dates: start: 201505
  7. DENOTAS [Concomitant]
     Active Substance: CALCIUM CARBONATE\CHOLECALCIFEROL\MAGNESIUM CARBONATE
     Dosage: 1 DF, BID
     Route: 048
     Dates: start: 20150930, end: 20160329
  8. LOXONIN [Concomitant]
     Active Substance: LOXOPROFEN SODIUM
     Dosage: 60 MG, TID
     Route: 048
     Dates: start: 20150630, end: 20150930
  9. PRALIA [Suspect]
     Active Substance: DENOSUMAB
     Indication: OSTEOPOROSIS
     Dosage: 60 MG, Q6MO
     Route: 058
     Dates: start: 20150930, end: 20150930
  10. PREDNISOLONE. [Suspect]
     Active Substance: PREDNISOLONE
     Indication: PRODUCT USED FOR UNKNOWN INDICATION
     Dosage: 3.5 UNK, QD, MORNING
     Route: 048
     Dates: start: 201506
  11. PREDNISOLONE. [Suspect]
     Active Substance: PREDNISOLONE
     Dosage: 20 MG, QD, MORNING
     Route: 048
     Dates: start: 201505, end: 201506

REACTIONS (1)
  - Osteonecrosis of jaw [Recovering/Resolving]

NARRATIVE: CASE EVENT DATE: 201604
